FAERS Safety Report 7891570-X (Version None)
Quarter: 2011Q4

REPORT INFORMATION
  Report Type: 
  Country: None (occurrence: None)
  Receive Date: 20111103
  Receipt Date: 20110805
  Transmission Date: 20120403
  Serious: No
  Sender: FDA-Public Use
  Company Number: US-AMGEN-USASP2011031521

PATIENT
  Age: 56 Year
  Sex: Female
  Weight: 121.9 kg

DRUGS (9)
  1. VITAMIN B6 [Concomitant]
  2. CALCIUM [Concomitant]
     Dosage: UNK
  3. ARAVA [Concomitant]
     Dosage: UNK
  4. ENBREL [Suspect]
     Indication: RHEUMATOID ARTHRITIS
     Dosage: 50 MG, QWK
     Route: 058
     Dates: start: 20090401
  5. FISH OIL [Concomitant]
     Dosage: UNK
  6. LISINOPRIL AND HYDROCHLOROTHIAZIDE [Concomitant]
     Dosage: UNK
  7. FOLIC ACID [Concomitant]
     Dosage: UNK
  8. DAYPRO [Concomitant]
     Dosage: UNK
  9. LORTAB [Concomitant]
     Dosage: UNK

REACTIONS (3)
  - BREAST SWELLING [None]
  - WEIGHT INCREASED [None]
  - ABDOMINAL DISTENSION [None]
